FAERS Safety Report 5200205-6 (Version None)
Quarter: 2007Q1

REPORT INFORMATION
  Report Type: 
  Country: None (occurrence: None)
  Receive Date: 20070105
  Receipt Date: 20061218
  Transmission Date: 20070707
  Serious: Yes (Other)
  Sender: FDA-Public Use
  Company Number: PHBS2006NL19710

PATIENT
  Age: 80 Year
  Sex: Male

DRUGS (4)
  1. SYMMETREL [Suspect]
     Indication: PARKINSON'S DISEASE
     Dosage: 100 MG, BID
     Route: 048
     Dates: start: 20061108, end: 20061204
  2. METOPROLOL SUCCINATE [Suspect]
     Dosage: 100 MG, QD
     Route: 048
     Dates: start: 20040616
  3. FUROSEMIDE [Suspect]
     Dosage: 20 MG, QD
     Route: 048
     Dates: start: 20050714
  4. ASCAL CARDIO [Concomitant]
     Dosage: 100 MG, QD
     Route: 048
     Dates: start: 20040920

REACTIONS (4)
  - ASTHENIA [None]
  - FALL [None]
  - MUSCULAR WEAKNESS [None]
  - URINARY INCONTINENCE [None]
